FAERS Safety Report 6074811-3 (Version None)
Quarter: 2009Q1

REPORT INFORMATION
  Report Type: 
  Country: None (occurrence: None)
  Receive Date: 20090210
  Receipt Date: 20090210
  Transmission Date: 20090719
  Serious: No
  Sender: FDA-Public Use
  Company Number: None

PATIENT
  Age: 61 Year
  Sex: Male

DRUGS (3)
  1. DAPTOMYCIN [Suspect]
  2. SIMVASTATIN [Concomitant]
  3. AMLODIPINE [Concomitant]

REACTIONS (1)
  - EOSINOPHILIC PNEUMONIA [None]
